FAERS Safety Report 9384126 (Version 1)
Quarter: 2013Q3

REPORT INFORMATION
  Report Type: Report from Study
  Country: CA (occurrence: CA)
  Receive Date: 20130705
  Receipt Date: 20130705
  Transmission Date: 20140515
  Serious: Yes (Hospitalization)
  Sender: FDA-Public Use
  Company Number: CA-JNJFOC-20130620463

PATIENT
  Age: 55 Year
  Sex: Male
  Weight: 79.5 kg

DRUGS (2)
  1. REMICADE [Suspect]
     Indication: CROHN^S DISEASE
     Route: 042
  2. TRAMACET [Concomitant]
     Route: 065

REACTIONS (3)
  - Abdominal pain upper [Unknown]
  - Chest pain [Unknown]
  - Constipation [Unknown]
